FAERS Safety Report 4792453-4 (Version None)
Quarter: 2005Q4

REPORT INFORMATION
  Report Type: 
  Country: None (occurrence: None)
  Receive Date: 20051010
  Receipt Date: 20051004
  Transmission Date: 20060501
  Serious: Yes (Other)
  Sender: FDA-Public Use
  Company Number: US015892

PATIENT
  Age: 40 Year
  Sex: Female
  Weight: 60.9 kg

DRUGS (4)
  1. DEXTROAMPHETAMINE [Suspect]
     Indication: DRUG USE FOR UNKNOWN INDICATION
     Route: 065
  2. PROVIGIL [Suspect]
     Indication: FATIGUE
     Dosage: 200MG PER DAY
     Route: 048
     Dates: end: 20050801
  3. XANAX [Concomitant]
  4. CLOMIPRAMINE HCL [Concomitant]
     Dates: start: 20050601

REACTIONS (12)
  - ABNORMAL SENSATION IN EYE [None]
  - ANGER [None]
  - BLOOD PRESSURE INCREASED [None]
  - CEREBROVASCULAR ACCIDENT [None]
  - DEPRESSION [None]
  - EYE PAIN [None]
  - GLOSSODYNIA [None]
  - HEADACHE [None]
  - HYPERTENSION [None]
  - HYPOAESTHESIA [None]
  - IRRITABILITY [None]
  - LACUNAR INFARCTION [None]
